FAERS Safety Report 9702015 (Version 1)
Quarter: 2013Q4

REPORT INFORMATION
  Report Type: Spontaneous
  Country: US (occurrence: US)
  Receive Date: 20131121
  Receipt Date: 20131121
  Transmission Date: 20140711
  Serious: No
  Sender: FDA-Public Use
  Company Number: US-BAYER-2013-142402

PATIENT
  Age: 72 Year
  Sex: Female

DRUGS (1)
  1. ALEVE CAPLET [Suspect]
     Indication: HEADACHE

REACTIONS (1)
  - Drug ineffective [None]
